FAERS Safety Report 24943180 (Version 1)
Quarter: 2025Q1

REPORT INFORMATION
  Report Type: Report from Study
  Country: CA (occurrence: CA)
  Receive Date: 20250207
  Receipt Date: 20250207
  Transmission Date: 20250409
  Serious: Yes (Disabling)
  Sender: BIOCON
  Company Number: CA-MIMS-BCONMC-11256

PATIENT

DRUGS (1)
  1. HULIO [Suspect]
     Active Substance: ADALIMUMAB-FKJP
     Indication: Product used for unknown indication
     Route: 058

REACTIONS (1)
  - Loss of personal independence in daily activities [Unknown]
